FAERS Safety Report 11852016 (Version 1)
Quarter: 2015Q4

REPORT INFORMATION
  Report Type: Spontaneous
  Country: US (occurrence: US)
  Receive Date: 20151218
  Receipt Date: 20151218
  Transmission Date: 20160305
  Serious: No
  Sender: FDA-Public Use
  Company Number: US-UCBSA-2014020372

PATIENT
  Age: 42 Year
  Sex: Male

DRUGS (4)
  1. REGLAN [Suspect]
     Active Substance: METOCLOPRAMIDE HYDROCHLORIDE
     Indication: GASTROOESOPHAGEAL REFLUX DISEASE
     Dosage: UNK
     Dates: start: 201410, end: 201410
  2. PREVACID [Suspect]
     Active Substance: LANSOPRAZOLE
     Indication: GASTROOESOPHAGEAL REFLUX DISEASE
     Dosage: 1 DF, 2X/DAY (BID)
     Route: 048
     Dates: start: 2014, end: 20141101
  3. OMEPRAZOLE. [Suspect]
     Active Substance: OMEPRAZOLE
     Indication: GASTROOESOPHAGEAL REFLUX DISEASE
     Dosage: UNK
     Dates: start: 2014, end: 2014
  4. ZANTAC [Suspect]
     Active Substance: RANITIDINE HYDROCHLORIDE
     Indication: GASTROOESOPHAGEAL REFLUX DISEASE
     Dosage: 150 MG, UNK
     Dates: start: 2014, end: 2014

REACTIONS (5)
  - Disorientation [Recovered/Resolved]
  - Anxiety [Recovered/Resolved]
  - Vision blurred [Recovered/Resolved]
  - Somnolence [Unknown]
  - Panic attack [Recovered/Resolved]

NARRATIVE: CASE EVENT DATE: 2014
